FAERS Safety Report 4460255-4 (Version None)
Quarter: 2004Q3

REPORT INFORMATION
  Report Type: 
  Country: None (occurrence: None)
  Receive Date: 20040928
  Receipt Date: 20040219
  Transmission Date: 20050211
  Serious: No
  Sender: FDA-Public Use
  Company Number: US-GLAXOSMITHKLINE-A0498854A

PATIENT
  Age: 81 Year
  Sex: Female
  Weight: 68.2 kg

DRUGS (4)
  1. SEREVENT [Suspect]
     Indication: ASTHMA
  2. LIPITOR [Concomitant]
  3. COUMADIN [Concomitant]
  4. CAPOTEN [Concomitant]
     Route: 065

REACTIONS (2)
  - DRUG INEFFECTIVE [None]
  - PHARMACEUTICAL PRODUCT COMPLAINT [None]
